FAERS Safety Report 7298962-0 (Version None)
Quarter: 2011Q1

REPORT INFORMATION
  Report Type: 
  Country: None (occurrence: None)
  Receive Date: 20110217
  Receipt Date: 20110209
  Transmission Date: 20110831
  Serious: Yes (Hospitalization)
  Sender: FDA-Public Use
  Company Number: JP-ROCHE-755533

PATIENT
  Age: 76 Year
  Sex: Female

DRUGS (10)
  1. LAC-B [Concomitant]
     Dosage: PERORAL AGENT, DOSE FORM: POWDERED MEDICINE.
     Route: 048
  2. LANSOPRAZOLE [Concomitant]
     Route: 048
  3. XELODA [Suspect]
     Indication: BREAST CANCER
     Dosage: REPORTED AS XELODA 300
     Route: 048
  4. XELODA [Suspect]
     Dosage: REPORTED AS XELODA 300
     Route: 048
  5. LECICARBON [Concomitant]
     Dosage: DOSAGE IS UNCERTAIN
     Route: 054
  6. PYDOXAL [Concomitant]
     Route: 048
  7. CODEINE SULFATE [Concomitant]
     Dosage: POWDERED MEDICINE, DOSAGE IS UNCERTAIN
     Route: 048
  8. NAUZELIN [Concomitant]
     Dosage: TAKEN AS NEEDED, DOSAGE IS UNCERTAIN.
     Route: 048
  9. HYSRON-H [Concomitant]
     Route: 048
  10. TYKERB [Suspect]
     Indication: BREAST CANCER
     Dosage: DOSAGE IS UNCERTAIN
     Route: 048

REACTIONS (8)
  - NASOPHARYNGITIS [None]
  - ANXIETY [None]
  - DISEASE PROGRESSION [None]
  - APHAGIA [None]
  - CONSTIPATION [None]
  - NAUSEA [None]
  - MALIGNANT ASCITES [None]
  - MALIGNANT PLEURAL EFFUSION [None]
